FAERS Safety Report 7690573-8 (Version None)
Quarter: 2011Q3

REPORT INFORMATION
  Report Type: 
  Country: None (occurrence: None)
  Receive Date: 20110812
  Receipt Date: 20110729
  Transmission Date: 20111222
  Serious: No
  Sender: FDA-Public Use
  Company Number: LTI2011A00231

PATIENT
  Age: 66 Year
  Sex: Male

DRUGS (4)
  1. DIAMICRON (GLICLAZIDE) [Concomitant]
  2. SIMVASTATIN [Concomitant]
  3. ACTOS [Suspect]
     Indication: TYPE 2 DIABETES MELLITUS
     Dosage: 30 MG (30 MG,1 IN 1 D) ORAL
     Route: 048
     Dates: start: 20030401, end: 20110401
  4. GLUCOPHAGE [Concomitant]

REACTIONS (2)
  - INCONTINENCE [None]
  - TRANSITIONAL CELL CARCINOMA [None]
